FAERS Safety Report 9149558 (Version 1)
Quarter: 2013Q1

REPORT INFORMATION
  Report Type: Spontaneous
  Country: US (occurrence: US)
  Receive Date: 20130308
  Receipt Date: 20130308
  Transmission Date: 20140127
  Serious: No
  Sender: FDA-Public Use
  Company Number: US-ENDO PHARMACEUTICALS INC.-OPCR20120309

PATIENT
  Age: 31 Year
  Sex: Female

DRUGS (4)
  1. OPANA ER 20MG [Suspect]
     Indication: BACK PAIN
     Route: 048
     Dates: start: 20120417, end: 201204
  2. OPANA ER 20MG [Suspect]
     Indication: ARTHRALGIA
  3. OPANA ER [Concomitant]
     Dosage: UNKNOWN
     Route: 048
     Dates: start: 201111, end: 201204
  4. OPANA [Concomitant]
     Indication: BREAKTHROUGH PAIN
     Dates: end: 2012

REACTIONS (5)
  - Tremor [Not Recovered/Not Resolved]
  - Abdominal pain upper [Not Recovered/Not Resolved]
  - Feeling jittery [Not Recovered/Not Resolved]
  - Drug effect delayed [Not Recovered/Not Resolved]
  - Drug effect decreased [Not Recovered/Not Resolved]
